FAERS Safety Report 4377200-2 (Version None)
Quarter: 2004Q2

REPORT INFORMATION
  Report Type: 
  Country: None (occurrence: None)
  Receive Date: 20040609
  Receipt Date: 20040225
  Transmission Date: 20050107
  Serious: No
  Sender: FDA-Public Use
  Company Number: 2004200808US

PATIENT
  Sex: Female

DRUGS (1)
  1. BEXTRA [Suspect]
     Indication: ARTHRALGIA
     Dosage: 20 MG, UNK, UNKNOWN
     Route: 065
     Dates: start: 20040212, end: 20040218

REACTIONS (5)
  - ERYTHEMA [None]
  - NASOPHARYNGITIS [None]
  - RASH [None]
  - SKIN WARM [None]
  - SWELLING FACE [None]
